FAERS Safety Report 8263579-8 (Version None)
Quarter: 2012Q2

REPORT INFORMATION
  Report Type: 
  Country: None (occurrence: None)
  Receive Date: 20120405
  Receipt Date: 20120403
  Transmission Date: 20120825
  Serious: Yes (Other)
  Sender: FDA-Public Use
  Company Number: -VALEANT-2012VX001458

PATIENT
  Age: 66 Year
  Sex: Male

DRUGS (2)
  1. CETIRIZINE [Concomitant]
     Route: 065
     Dates: start: 20120309
  2. EFUDEX [Suspect]
     Route: 061
     Dates: start: 20120301, end: 20120101

REACTIONS (2)
  - RASH PRURITIC [None]
  - RASH GENERALISED [None]
